FAERS Safety Report 7775388-4 (Version None)
Quarter: 2011Q3

REPORT INFORMATION
  Report Type: 
  Country: None (occurrence: None)
  Receive Date: 20110923
  Receipt Date: 20110913
  Transmission Date: 20111222
  Serious: Yes (Hospitalization)
  Sender: FDA-Public Use
  Company Number: PHEH2011US04032

PATIENT
  Age: 21 Year
  Sex: Female
  Weight: 40.816 kg

DRUGS (3)
  1. TOBI [Suspect]
     Indication: CYSTIC FIBROSIS
     Dosage: 300 MG, BID
     Dates: start: 20090307
  2. TOBI [Suspect]
     Indication: DWARFISM
  3. PULMOZYME [Concomitant]
     Dosage: UNK UKN, UNK

REACTIONS (1)
  - STAPHYLOCOCCAL INFECTION [None]
